FAERS Safety Report 8917586 (Version 4)
Quarter: 2013Q3

REPORT INFORMATION
  Report Type: Report from Study
  Country: IT (occurrence: IT)
  Receive Date: 20121120
  Receipt Date: 20130716
  Transmission Date: 20140515
  Serious: Yes (Death, Hospitalization)
  Sender: FDA-Public Use
  Company Number: IT-BAYER-2012-070944

PATIENT
  Age: 64 Year
  Sex: Female
  Weight: 56 kg

DRUGS (11)
  1. REGORAFENIB [Suspect]
     Indication: COLORECTAL CANCER METASTATIC
     Dosage: 160 MG, QD
     Route: 048
     Dates: start: 20120618, end: 20120701
  2. REGORAFENIB [Suspect]
     Indication: COLORECTAL CANCER METASTATIC
     Dosage: 160 MG, QD
     Route: 048
     Dates: start: 20120618, end: 20120701
  3. REGORAFENIB [Suspect]
     Indication: COLORECTAL CANCER METASTATIC
     Dosage: 160 MG, QD
     Route: 048
     Dates: start: 20120618, end: 20120701
  4. REGORAFENIB [Suspect]
     Indication: COLORECTAL CANCER METASTATIC
  5. DEPALGOS [Concomitant]
     Indication: PAIN
     Dosage: DAILY DOSE 60 MG
     Route: 048
     Dates: start: 20120621, end: 20120707
  6. DEPALGOS [Concomitant]
     Indication: PAIN
     Dosage: 30 M G
     Dates: start: 20120708
  7. TRANSTEC [Concomitant]
     Indication: PAIN
     Dosage: DAILY DOSE 52.5 MG
     Route: 062
     Dates: start: 20120619, end: 20120620
  8. TRIATEC [Concomitant]
     Indication: HYPERTENSION
     Dosage: DAILY DOSE 5 MG
     Route: 048
     Dates: start: 20120610, end: 20120624
  9. MEDROL [Concomitant]
     Indication: PAIN
     Dosage: DAILY DOSE 16 MG
     Dates: start: 20120618
  10. MEDROL [Concomitant]
     Indication: ASTHENIA
  11. TRIATEC HCT [Concomitant]
     Indication: HYPERTENSION
     Dosage: 5+25 MG
     Route: 048
     Dates: start: 20120625

REACTIONS (2)
  - Cerebral ischaemia [Fatal]
  - Palmar-plantar erythrodysaesthesia syndrome [Unknown]
